FAERS Safety Report 10215145 (Version 1)
Quarter: 2014Q2

REPORT INFORMATION
  Report Type: Spontaneous
  Country: DK (occurrence: GB)
  Receive Date: 20140603
  Receipt Date: 20140603
  Transmission Date: 20141212
  Serious: Yes (Other)
  Sender: FDA-Public Use
  Company Number: GB-FRI-1000067824

PATIENT
  Age: 40 Year
  Sex: Male

DRUGS (8)
  1. CITALOPRAM [Suspect]
     Indication: DEPRESSION
     Dosage: 40 MG DAILY
     Route: 048
  2. ONDANSETRON [Concomitant]
  3. LANSOPRAZOLE [Concomitant]
  4. METOCLOPRAMIDE [Concomitant]
  5. LORAZEPAM [Concomitant]
  6. MEROPENEM [Concomitant]
  7. SULCONAZOLE [Concomitant]
  8. ACICLOVIR [Concomitant]

REACTIONS (2)
  - Germ cell cancer [Not Recovered/Not Resolved]
  - Alpha 1 foetoprotein increased [Not Recovered/Not Resolved]
